FAERS Safety Report 5394787-1 (Version None)
Quarter: 2007Q3

REPORT INFORMATION
  Report Type: 
  Country: None (occurrence: None)
  Receive Date: 20070723
  Receipt Date: 20070712
  Transmission Date: 20080115
  Serious: Yes (Hospitalization, Other)
  Sender: FDA-Public Use
  Company Number: US-PFIZER INC-2007058473

PATIENT
  Sex: Female

DRUGS (3)
  1. CELEBREX [Suspect]
  2. BEXTRA [Concomitant]
  3. TYLENOL (CAPLET) [Concomitant]
     Dosage: FREQ:AS NEEDED

REACTIONS (4)
  - CEREBROVASCULAR ACCIDENT [None]
  - MITRAL VALVE INCOMPETENCE [None]
  - MYOCARDIAL INFARCTION [None]
  - PULMONARY VALVE INCOMPETENCE [None]
